FAERS Safety Report 24396036 (Version 1)
Quarter: 2024Q4

REPORT INFORMATION
  Report Type: Spontaneous
  Country: US (occurrence: US)
  Receive Date: 20241004
  Receipt Date: 20241004
  Transmission Date: 20250114
  Serious: Yes (Other)
  Sender: BAYER
  Company Number: US-BAYER-2024A137521

PATIENT
  Age: 32 Year
  Sex: Male

DRUGS (2)
  1. JIVI [Suspect]
     Active Substance: DAMOCTOCOG ALFA PEGOL
     Indication: Factor VIII deficiency
     Dosage: 500 IU, BIW
     Route: 042
     Dates: start: 201502
  2. JIVI [Suspect]
     Active Substance: DAMOCTOCOG ALFA PEGOL
     Indication: Prophylaxis
     Dosage: 2000 IU, BIW
     Route: 042
     Dates: start: 201502

REACTIONS (5)
  - Haemarthrosis [Recovered/Resolved]
  - Vessel puncture site induration [None]
  - Injection site induration [None]
  - Injection site erythema [None]
  - Injection site irritation [None]
